FAERS Safety Report 10907414 (Version 1)
Quarter: 2015Q1

REPORT INFORMATION
  Report Type: Spontaneous
  Country: US (occurrence: None)
  Receive Date: 20150309
  Receipt Date: 20150309
  Transmission Date: 20150721
  Serious: Yes (Hospitalization, Other)
  Sender: FDA-Public Use
  Company Number: None

PATIENT
  Age: 79 Year
  Sex: Female
  Weight: 67.13 kg

DRUGS (18)
  1. HYDROCHLORTHIZIDE 12.5 MG [Concomitant]
  2. FLAXSEED [Concomitant]
     Active Substance: FLAX SEED
  3. LESARTAN 25 MG [Concomitant]
  4. GARLIC CAPSULES [Concomitant]
  5. LEVOTHYROXINE 75 MG [Concomitant]
  6. ADVAIR PRN [Concomitant]
  7. TRAMADOL 25 MG [Concomitant]
     Active Substance: TRAMADOL
  8. IBUPROFEN. [Concomitant]
     Active Substance: IBUPROFEN
  9. ACYCLOVIR 200 MG [Concomitant]
  10. SINGULAIR [Concomitant]
     Active Substance: MONTELUKAST SODIUM
  11. BENADRYL [Concomitant]
     Active Substance: DIPHENHYDRAMINE HYDROCHLORIDE
  12. LOVENOX [Suspect]
     Active Substance: ENOXAPARIN SODIUM
     Indication: ANTICOAGULANT THERAPY
     Dosage: GIVEN INTO/UNDER THE SKIN
     Dates: start: 20150215, end: 20150218
  13. ASPIRIN 81 MG [Concomitant]
     Active Substance: ASPIRIN
  14. CRANBERRY CAPSULES [Concomitant]
  15. LOVENOX [Suspect]
     Active Substance: ENOXAPARIN SODIUM
     Indication: PROPHYLAXIS
     Dosage: GIVEN INTO/UNDER THE SKIN
     Dates: start: 20150215, end: 20150218
  16. CLARITIN [Concomitant]
     Active Substance: LORATADINE
  17. CALCIUM CITRATE [Concomitant]
     Active Substance: CALCIUM CITRATE
  18. VITAMINS [Concomitant]
     Active Substance: VITAMINS

REACTIONS (8)
  - Abdominal wall haematoma [None]
  - Liver injury [None]
  - Shock [None]
  - Renal disorder [None]
  - Pancreatic disorder [None]
  - Activities of daily living impaired [None]
  - Hypotension [None]
  - Impaired self-care [None]

NARRATIVE: CASE EVENT DATE: 20150217
